FAERS Safety Report 5798126-3 (Version None)
Quarter: 2008Q2

REPORT INFORMATION
  Report Type: 
  Country: None (occurrence: None)
  Receive Date: 20080620
  Receipt Date: 20070514
  Transmission Date: 20081010
  Serious: No
  Sender: FDA-Public Use
  Company Number: T200700518

PATIENT
  Age: 79 Year
  Sex: Female
  Weight: 53.5 kg

DRUGS (9)
  1. HYDROCODONE/ACETAMINOPHEN(HYDROCODONE BITARTRATE, ACETAMINOPHEN TABLET [Suspect]
     Dosage: 15 TABLETS, ORAL; 13 TABLETS, ORAL; 10 TABLETS, ORAL
     Route: 048
     Dates: start: 20070512, end: 20070514
  2. HYDROCODONE/ACETAMINOPHEN(HYDROCODONE BITARTRATE, ACETAMINOPHEN TABLET [Suspect]
     Dosage: 15 TABLETS, ORAL; 13 TABLETS, ORAL; 10 TABLETS, ORAL
     Route: 048
     Dates: start: 20070513, end: 20070514
  3. HYDROCODONE/ACETAMINOPHEN(HYDROCODONE BITARTRATE, ACETAMINOPHEN TABLET [Suspect]
     Dosage: 15 TABLETS, ORAL; 13 TABLETS, ORAL; 10 TABLETS, ORAL
     Route: 048
     Dates: start: 20070514, end: 20070514
  4. NORVASC /00972401/ (AMLODIPINE) [Concomitant]
  5. CHLOROTHIAZIDE [Concomitant]
  6. SELEGILINE (SELEGILINE) [Concomitant]
  7. MIRAPEX (PRAMIPEXOLE DIHYCHLORIDE) [Concomitant]
  8. FOLIC ACID [Concomitant]
  9. HORMONES NOS [Concomitant]

REACTIONS (3)
  - DRUG DISPENSING ERROR [None]
  - SOMNOLENCE [None]
  - WRONG DRUG ADMINISTERED [None]
